FAERS Safety Report 5528506-2 (Version None)
Quarter: 2007Q4

REPORT INFORMATION
  Report Type: 
  Country: None (occurrence: None)
  Receive Date: 20071123
  Receipt Date: 20071105
  Transmission Date: 20080405
  Serious: Yes (Death, Other)
  Sender: FDA-Public Use
  Company Number: CLOF-10743

PATIENT
  Sex: Male

DRUGS (4)
  1. CLOFARABINE. MFR: GENZYME [Suspect]
     Indication: ACUTE MYELOID LEUKAEMIA
     Dosage: 20 MG/M2 QD X 5 IV
     Route: 042
     Dates: start: 20070910, end: 20070914
  2. CLOFARABINE. MFR: GENZYME [Suspect]
     Indication: ACUTE MYELOID LEUKAEMIA
     Dates: start: 20071015, end: 20071019
  3. DAUNORUBICIN HCL [Suspect]
     Indication: ACUTE MYELOID LEUKAEMIA
     Dosage: 50 MG/M2 QD X 3
     Dates: start: 20070910, end: 20070912
  4. DAUNORUBICIN HCL [Suspect]
     Indication: ACUTE MYELOID LEUKAEMIA
     Dates: start: 20071015

REACTIONS (8)
  - CATHETER RELATED INFECTION [None]
  - FLUID INTAKE REDUCED [None]
  - NAUSEA [None]
  - OEDEMA [None]
  - PALMAR-PLANTAR ERYTHRODYSAESTHESIA SYNDROME [None]
  - RENAL IMPAIRMENT [None]
  - SEPSIS [None]
  - THERAPEUTIC AGENT TOXICITY [None]
